FAERS Safety Report 6498385-8 (Version None)
Quarter: 2009Q4

REPORT INFORMATION
  Report Type: 
  Country: None (occurrence: None)
  Receive Date: 20091215
  Receipt Date: 20091204
  Transmission Date: 20100525
  Serious: Yes (Life-Threatening, Hospitalization)
  Sender: FDA-Public Use
  Company Number: FR-BRISTOL-MYERS SQUIBB COMPANY-14564306

PATIENT
  Age: 78 Year
  Sex: Female

DRUGS (12)
  1. GLUCOPHAGE [Suspect]
     Indication: TYPE 2 DIABETES MELLITUS
     Dosage: 2550 MG
     Route: 048
     Dates: end: 20081225
  2. BI-PROFENID [Concomitant]
     Indication: PAIN
     Dosage: FORM=TABS
     Route: 048
  3. BI-PROFENID [Concomitant]
     Indication: HIP ARTHROPLASTY
     Dosage: FORM=TABS
     Route: 048
  4. ARIXTRA [Concomitant]
     Indication: DEEP VEIN THROMBOSIS
     Dosage: 1 DF= 7.5MG/0.6ML;SOLN FOR INJ
     Route: 058
     Dates: start: 20081206, end: 20081225
  5. NEXIUM [Concomitant]
     Indication: GASTROOESOPHAGEAL REFLUX DISEASE
     Dosage: FORM=TABS
     Route: 048
  6. DIAMICRON [Concomitant]
     Indication: TYPE 2 DIABETES MELLITUS
     Route: 048
     Dates: end: 20081225
  7. KALEORID [Concomitant]
     Indication: HYPOKALAEMIA
     Dosage: FORMU: 9PROLONGED RELEASE TABLET) 2 GRAM.
     Route: 048
     Dates: end: 20081225
  8. LASILIX [Concomitant]
     Indication: HYPERTENSION
     Dosage: 40MG; FORM=TABS DISCONTINUED ON 25DEC08
     Route: 048
     Dates: end: 20081225
  9. LESCOL [Concomitant]
     Indication: HYPERCHOLESTEROLAEMIA
     Dosage: 80MG;FORM=TABS
     Route: 048
     Dates: end: 20081225
  10. LEVOTHYROXINE SODIUM [Concomitant]
     Indication: HYPOTHYROIDISM
     Dosage: 50 MICROGRAM TABS
     Route: 048
  11. GAVISCON [Concomitant]
     Indication: GASTROOESOPHAGEAL REFLUX DISEASE
     Route: 048
     Dates: end: 20081225
  12. CARBOSYLANE [Concomitant]
     Indication: GASTROINTESTINAL DISORDER
     Dosage: FORM=CAPSULE
     Route: 048
     Dates: start: 20081217, end: 20081225

REACTIONS (8)
  - DEEP VEIN THROMBOSIS [None]
  - FRACTURE [None]
  - HYPOVOLAEMIC SHOCK [None]
  - LACTIC ACIDOSIS [None]
  - RENAL FAILURE ACUTE [None]
  - SEPTIC SHOCK [None]
  - SHOCK HAEMORRHAGIC [None]
  - VOMITING [None]
